FAERS Safety Report 13253237 (Version 2)
Quarter: 2017Q2

REPORT INFORMATION
  Report Type: Spontaneous
  Country: US (occurrence: US)
  Receive Date: 20170220
  Receipt Date: 20170517
  Transmission Date: 20170830
  Serious: No
  Sender: FDA-Public Use
  Company Number: US-ACADIA PHARMACEUTICALS INC.-ACA-2016-001692

PATIENT
  Age: 91 Year
  Sex: Male
  Weight: 55.78 kg

DRUGS (16)
  1. NUPLAZID [Suspect]
     Active Substance: PIMAVANSERIN TARTRATE
     Indication: PARKINSON^S DISEASE PSYCHOSIS
  2. VITAMIN C [Concomitant]
     Active Substance: ASCORBIC ACID
  3. NUPLAZID [Suspect]
     Active Substance: PIMAVANSERIN TARTRATE
     Indication: AMNESIA
     Dosage: 17 MG, QD
     Route: 048
     Dates: start: 2017, end: 2017
  4. VITAMIN B COMPLEX [Concomitant]
     Active Substance: CYANOCOBALAMIN\DEXPANTHENOL\NIACINAMIDE\PYRIDOXINE HYDROCHLORIDE\RIBOFLAVIN 5^-PHOSPHATE SODIUM\THIAMINE HYDROCHLORIDE\VITAMIN B COMPLEX
  5. IRON [Concomitant]
     Active Substance: IRON
  6. NUPLAZID [Suspect]
     Active Substance: PIMAVANSERIN TARTRATE
     Indication: HALLUCINATION
     Dosage: 34 MG, QD
     Route: 048
     Dates: start: 2017
  7. FOLIC ACID. [Concomitant]
     Active Substance: FOLIC ACID
     Indication: PRODUCT USED FOR UNKNOWN INDICATION
     Dosage: UNK
  8. ALLOPURINOL. [Concomitant]
     Active Substance: ALLOPURINOL
  9. CARBIDOPA/LEVODOPA [Concomitant]
     Active Substance: CARBIDOPA\LEVODOPA
  10. DONEPEZIL. [Concomitant]
     Active Substance: DONEPEZIL
  11. MULTIVITAMIN [Concomitant]
     Active Substance: VITAMINS
  12. NUPLAZID [Suspect]
     Active Substance: PIMAVANSERIN TARTRATE
     Indication: ANXIETY
     Dosage: 34 MG, QD
     Route: 048
     Dates: start: 201612, end: 20161222
  13. NUPLAZID [Suspect]
     Active Substance: PIMAVANSERIN TARTRATE
     Indication: DELUSION
  14. MIDODRINE [Concomitant]
     Active Substance: MIDODRINE
  15. VITAMIN B12 [Concomitant]
     Active Substance: CYANOCOBALAMIN
  16. CLONAZEPAM. [Concomitant]
     Active Substance: CLONAZEPAM

REACTIONS (10)
  - Memory impairment [Unknown]
  - Feeling abnormal [Unknown]
  - Somnolence [Unknown]
  - Off label use [Unknown]
  - Dementia [Not Recovered/Not Resolved]
  - Dysphonia [Unknown]
  - Dysphemia [Not Recovered/Not Resolved]
  - Hallucination [Unknown]
  - Drug ineffective [Unknown]
  - Delusion [Unknown]

NARRATIVE: CASE EVENT DATE: 2016
